FAERS Safety Report 15183899 (Version 5)
Quarter: 2018Q4

REPORT INFORMATION
  Report Type: Report from Study
  Country: GB (occurrence: GB)
  Receive Date: 20180723
  Receipt Date: 20181213
  Transmission Date: 20190204
  Serious: Yes (Hospitalization)
  Sender: FDA-Public Use
  Company Number: GB-TAKEDA-2018TUS019994

PATIENT
  Age: 59 Year
  Sex: Female

DRUGS (5)
  1. BUSCOPAN [Concomitant]
     Active Substance: BUTYLSCOPOLAMINE BROMIDE
     Dosage: UNK
  2. RIFAXIMIN. [Concomitant]
     Active Substance: RIFAXIMIN
     Dosage: UNK
  3. VEDOLIZUMAB [Suspect]
     Active Substance: VEDOLIZUMAB
     Indication: CROHN^S DISEASE
     Dosage: UNK
     Route: 042
     Dates: start: 20180614
  4. VEDOLIZUMAB [Suspect]
     Active Substance: VEDOLIZUMAB
     Dosage: UNK UNK, Q4WEEKS
     Route: 042
     Dates: start: 20180921
  5. LANSOPRAZOLE. [Concomitant]
     Active Substance: LANSOPRAZOLE
     Dosage: UNK

REACTIONS (31)
  - Chest pain [Unknown]
  - Arthralgia [Unknown]
  - Nausea [Unknown]
  - Diarrhoea [Recovered/Resolved]
  - Abdominal pain [Unknown]
  - Anal incontinence [Unknown]
  - Constipation [Unknown]
  - Fistula [Unknown]
  - Influenza like illness [Unknown]
  - Fatigue [Unknown]
  - Rectal fissure [Unknown]
  - Blister [Unknown]
  - Blood pressure increased [Unknown]
  - Vision blurred [Unknown]
  - Haemoglobin decreased [Unknown]
  - Anger [Unknown]
  - Abdominal distension [Unknown]
  - Gastrointestinal inflammation [Unknown]
  - Blood pressure fluctuation [Unknown]
  - Stress [Unknown]
  - Tachycardia [Unknown]
  - Off label use [Unknown]
  - Rectal haemorrhage [Recovered/Resolved]
  - Myalgia [Unknown]
  - Hiatus hernia [Unknown]
  - Heart rate increased [Unknown]
  - Musculoskeletal pain [Unknown]
  - Dyspnoea [Unknown]
  - Weight increased [Unknown]
  - Weight decreased [Not Recovered/Not Resolved]
  - Somnolence [Unknown]
